FAERS Safety Report 12331337 (Version 2)
Quarter: 2016Q2

REPORT INFORMATION
  Report Type: Spontaneous
  Country: IT (occurrence: IT)
  Receive Date: 20160504
  Receipt Date: 20160513
  Transmission Date: 20160815
  Serious: Yes (Other)
  Sender: FDA-Public Use
  Company Number: IT-SUN PHARMACEUTICAL INDUSTRIES LTD-2016RR-115892

PATIENT
  Age: 77 Year
  Sex: Female
  Weight: 50 kg

DRUGS (6)
  1. AVASTIN [Concomitant]
     Active Substance: BEVACIZUMAB
     Indication: COLON CANCER
     Dosage: 250 MG
     Route: 042
  2. OXALIPLATIN. [Suspect]
     Active Substance: OXALIPLATIN
     Indication: COLON CANCER
     Dosage: 60 MG CYCLICAL
     Route: 042
     Dates: start: 20151116, end: 20160405
  3. NAVOBAN [Concomitant]
     Active Substance: TROPISETRON HYDROCHLORIDE
     Indication: PROPHYLAXIS OF NAUSEA AND VOMITING
     Dosage: 5 MG
     Route: 042
     Dates: start: 20151116
  4. ZANTAC [Concomitant]
     Active Substance: RANITIDINE HYDROCHLORIDE
     Indication: PROPHYLAXIS OF NAUSEA AND VOMITING
     Dosage: 50 MG
     Route: 042
     Dates: start: 20151116
  5. SOLDESAM [Concomitant]
     Active Substance: DEXAMETHASONE
     Indication: INFLAMMATION
     Dosage: 8 MG
     Route: 042
     Dates: start: 20151116
  6. FLUOROURACIL. [Concomitant]
     Active Substance: FLUOROURACIL
     Indication: COLON CANCER
     Dosage: 2900 MG
     Route: 042
     Dates: start: 20151116

REACTIONS (2)
  - Neurotoxicity [Unknown]
  - Paraesthesia [Unknown]

NARRATIVE: CASE EVENT DATE: 20160405
